FAERS Safety Report 6119634-1 (Version None)
Quarter: 2009Q1

REPORT INFORMATION
  Report Type: 
  Country: None (occurrence: None)
  Receive Date: 20090316
  Receipt Date: 20090309
  Transmission Date: 20090719
  Serious: Yes (Hospitalization)
  Sender: FDA-Public Use
  Company Number: US-BIOGENIDEC-2009BI007277

PATIENT
  Age: 58 Year
  Sex: Female
  Weight: 71 kg

DRUGS (4)
  1. AVONEX [Suspect]
     Indication: MULTIPLE SCLEROSIS
     Route: 030
     Dates: start: 20051201, end: 20060101
  2. AVONEX [Suspect]
     Route: 030
     Dates: start: 20060101, end: 20060101
  3. AVONEX [Suspect]
     Route: 030
     Dates: start: 20060101, end: 20060201
  4. AVONEX [Suspect]
     Route: 030
     Dates: start: 20060201, end: 20090101

REACTIONS (2)
  - CARDIAC ELECTROPHYSIOLOGIC STUDY ABNORMAL [None]
  - LOSS OF CONSCIOUSNESS [None]
